FAERS Safety Report 11203995 (Version 1)
Quarter: 2015Q2

REPORT INFORMATION
  Report Type: Spontaneous
  Country: US (occurrence: US)
  Receive Date: 20150619
  Receipt Date: 20150619
  Transmission Date: 20150821
  Serious: Yes (Death, Other)
  Sender: FDA-Public Use
  Company Number: PHHY2015US070155

PATIENT

DRUGS (2)
  1. THALIDOMIDE [Suspect]
     Active Substance: THALIDOMIDE
     Indication: POLYCYTHAEMIA VERA
     Route: 065
  2. IMATINIB [Suspect]
     Active Substance: IMATINIB
     Indication: POLYCYTHAEMIA VERA
     Route: 065

REACTIONS (3)
  - Death [Fatal]
  - Polycythaemia vera [Unknown]
  - Malignant neoplasm progression [Unknown]
